FAERS Safety Report 6306072-1 (Version None)
Quarter: 2009Q3

REPORT INFORMATION
  Report Type: 
  Country: None (occurrence: None)
  Receive Date: 20090812
  Receipt Date: 20090805
  Transmission Date: 20100115
  Serious: Yes (Hospitalization)
  Sender: FDA-Public Use
  Company Number: FR-JNJFOC-20090801446

PATIENT
  Age: 70 Year
  Sex: Female

DRUGS (8)
  1. RISPERDAL [Suspect]
     Route: 048
  2. RISPERDAL [Suspect]
     Indication: DRUG USE FOR UNKNOWN INDICATION
     Route: 048
  3. DEPAKENE [Concomitant]
     Route: 065
  4. CYMBALTA [Concomitant]
     Route: 065
  5. NEXIUM [Concomitant]
     Route: 065
  6. CALCIUM [Concomitant]
     Route: 065
  7. DAFALGAN [Concomitant]
     Route: 065
  8. PREVISCAN [Concomitant]
     Route: 065

REACTIONS (1)
  - EOSINOPHILIA [None]
